FAERS Safety Report 5581438-6 (Version None)
Quarter: 2008Q1

REPORT INFORMATION
  Report Type: 
  Country: None (occurrence: None)
  Receive Date: 20080104
  Receipt Date: 20071226
  Transmission Date: 20080703
  Serious: Yes (Death, Life-Threatening, Other)
  Sender: FDA-Public Use
  Company Number: JP-NOVOPROD-270559

PATIENT

DRUGS (8)
  1. NOVOSEVEN [Suspect]
     Indication: HAEMOPHILIA A WITH ANTI FACTOR VIII
     Dosage: 9.6-28.8
     Route: 042
     Dates: start: 20070616, end: 20070703
  2. SIGMART [Concomitant]
     Indication: ANGINA PECTORIS
     Dosage: 48 MG, UNK
     Route: 042
     Dates: start: 20070604, end: 20070625
  3. OMEPRAL                            /00661201/ [Concomitant]
     Indication: PROPHYLAXIS
     Dosage: 40 MG, UNK
     Route: 042
     Dates: start: 20070611, end: 20070625
  4. BISOLVON                           /00004702/ [Concomitant]
     Indication: PRODUCTIVE COUGH
     Dosage: 16 MG, UNK
     Route: 042
     Dates: start: 20070604, end: 20070625
  5. KAYTWO                             /00357701/ [Concomitant]
     Indication: HAEMOSTASIS
     Dosage: 20 MG, UNK
     Route: 042
     Dates: start: 20070622, end: 20070704
  6. TIENAM [Concomitant]
     Indication: PNEUMONIA ASPIRATION
     Dosage: 1 G, UNK
     Route: 042
     Dates: start: 20070621, end: 20070622
  7. PREDNISOLONE [Concomitant]
     Dosage: 60 MG, UNK
     Route: 042
     Dates: start: 20070621, end: 20070625
  8. PREDNISOLONE [Concomitant]
     Dosage: 40-60
     Route: 048
     Dates: start: 20070625, end: 20070817

REACTIONS (3)
  - DISSEMINATED INTRAVASCULAR COAGULATION [None]
  - PNEUMONIA ASPIRATION [None]
  - SEPTIC SHOCK [None]
